FAERS Safety Report 4895894-X (Version None)
Quarter: 2005Q4

REPORT INFORMATION
  Report Type: 
  Country: None (occurrence: None)
  Receive Date: 20051220
  Receipt Date: 20051004
  Transmission Date: 20060501
  Serious: Yes (Other)
  Sender: FDA-Public Use
  Company Number: 419913

PATIENT
  Age: 56 Year
  Sex: Female

DRUGS (2)
  1. BONIVA [Suspect]
     Indication: OSTEOPOROSIS
     Dosage: 150 MG
     Dates: start: 20050615, end: 20050915
  2. THYROXINE SODIUM (LEVOTHYROXINE) [Concomitant]

REACTIONS (2)
  - ABDOMINAL DISCOMFORT [None]
  - ARTHRALGIA [None]
